FAERS Safety Report 9230674 (Version 2)
Quarter: 2013Q2

REPORT INFORMATION
  Report Type: Spontaneous
  Country: US (occurrence: US)
  Receive Date: 20130415
  Receipt Date: 20130419
  Transmission Date: 20140414
  Serious: Yes (Hospitalization)
  Sender: FDA-Public Use
  Company Number: US-GILEAD-2013-0073389

PATIENT
  Age: 82 Year
  Sex: Female

DRUGS (15)
  1. LETAIRIS [Suspect]
     Indication: PULMONARY ARTERIAL HYPERTENSION
     Dosage: 5 MG, QD
     Dates: start: 20111019
  2. ADCIRCA [Concomitant]
     Dosage: 20 MG, QD
     Route: 048
  3. OXYGEN [Concomitant]
     Indication: SLEEP APNOEA SYNDROME
  4. ALBUTEROL                          /00139501/ [Concomitant]
     Indication: WHEEZING
     Dosage: 2 DF, PRN
     Route: 055
  5. LIPITOR [Concomitant]
     Dosage: 10 MG, QD
     Route: 048
  6. VITAMIN D3 [Concomitant]
     Dosage: 1000 IU, QD
     Route: 048
  7. VOLTAREN                           /00372301/ [Concomitant]
     Dosage: 4 G, QID
     Route: 061
  8. FERROUS SULFATE [Concomitant]
     Dosage: 325 MG, BID
     Route: 048
  9. ADVAIR [Concomitant]
     Dosage: 1 DF, BID
     Route: 055
  10. LASIX                              /00032601/ [Concomitant]
     Dosage: 20 MG, UNK
     Route: 048
  11. NEURONTIN [Concomitant]
     Dosage: 100 MG, UNK
     Route: 048
  12. LOPRESSOR [Concomitant]
     Dosage: 25 MG, BID
     Route: 048
  13. PERCOCET                           /00446701/ [Concomitant]
     Indication: PAIN
     Dosage: 1 DF, QID
     Route: 048
  14. LAMISIL                            /00992601/ [Concomitant]
     Dosage: 1 DF, BID
     Route: 061
  15. TYVASO [Concomitant]
     Dosage: 1 DF, QID
     Route: 055

REACTIONS (2)
  - Haematochezia [Unknown]
  - Anaemia [Unknown]
